FAERS Safety Report 9493403 (Version 1)
Quarter: 2013Q3

REPORT INFORMATION
  Report Type: Report from Study
  Country: IL (occurrence: IL)
  Receive Date: 20130902
  Receipt Date: 20130902
  Transmission Date: 20140515
  Serious: Yes (Hospitalization, Other)
  Sender: FDA-Public Use
  Company Number: PHHY2013IL094452

PATIENT
  Age: 72 Year
  Sex: Female

DRUGS (2)
  1. SANDOSTATIN LAR [Suspect]
     Indication: CARCINOID TUMOUR
     Dosage: 30 MG, ONCE EVERY 4 WEEKS
     Dates: start: 20120422
  2. SANDOSTATIN LAR [Suspect]
     Dosage: 30 MG, ONCE EVERY 4 WEEKS
     Dates: start: 20130828

REACTIONS (5)
  - Ureteric obstruction [Unknown]
  - Bacteraemia [Unknown]
  - Pyrexia [Unknown]
  - Chills [Unknown]
  - Haematuria [Unknown]
